FAERS Safety Report 21099375 (Version 1)
Quarter: 2022Q3

REPORT INFORMATION
  Report Type: Spontaneous
  Country: US (occurrence: US)
  Receive Date: 20220719
  Receipt Date: 20220719
  Transmission Date: 20221027
  Serious: Yes (Other)
  Sender: FDA-Public Use
  Company Number: US-PFIZER INC-202200962305

PATIENT
  Age: 68 Year
  Sex: Female
  Weight: 68.49 kg

DRUGS (7)
  1. PAXLOVID [Suspect]
     Active Substance: NIRMATRELVIR\RITONAVIR
     Indication: COVID-19 treatment
     Dosage: [PF-07321332 300 MG]/[RITONAVIR 100 MG], 2X/DAY
     Route: 048
     Dates: start: 20220707, end: 20220711
  2. DIGOXIN [Suspect]
     Active Substance: DIGOXIN
     Indication: Cardiomyopathy
     Dosage: 0.25 MG, 1X/DAY (ONCE A DAY)
     Route: 048
  3. DIGOXIN [Suspect]
     Active Substance: DIGOXIN
     Indication: Cardiac failure congestive
  4. CONTRAVE [Suspect]
     Active Substance: BUPROPION HYDROCHLORIDE\NALTREXONE HYDROCHLORIDE
     Indication: Weight decreased
     Dosage: 2 DF, 2X/DAY ( 2 TABLETS BY MOUTH 2 TIMES A DAY IN MORNING MORNING AND EVENING)
  5. ALVESCO [Suspect]
     Active Substance: CICLESONIDE
     Indication: Asthma
     Dosage: 160 UG, 2X/DAY (1 SPRAY IN MORNING AND 1 IN EVENING)
  6. LASIX [Suspect]
     Active Substance: FUROSEMIDE
     Dosage: 1-2 TIMES A MONTH
  7. SPIRIVA [Concomitant]
     Active Substance: TIOTROPIUM BROMIDE MONOHYDRATE
     Indication: Asthma
     Dosage: 1.2 UG, 2X/DAY; (1 SPRAY IN MORNING AND 1 IN EVENING)

REACTIONS (2)
  - Cardiac failure [Unknown]
  - Peripheral swelling [Unknown]
